FAERS Safety Report 9475993 (Version 1)
Quarter: 2013Q3

REPORT INFORMATION
  Report Type: Spontaneous
  Country: US (occurrence: None)
  Receive Date: 20130822
  Receipt Date: 20130822
  Transmission Date: 20140515
  Serious: Yes (Other)
  Sender: FDA-Public Use
  Company Number: None

PATIENT
  Age: 58 Year
  Sex: Female
  Weight: 64 kg

DRUGS (5)
  1. CLOZAPINE [Suspect]
     Indication: PSYCHOTIC DISORDER
     Dosage: BEDTIME
     Route: 048
     Dates: start: 20130508, end: 20130821
  2. AMOXICILLIN [Concomitant]
  3. ASPIRIN [Concomitant]
  4. CHOLECALCIFEROL [Concomitant]
  5. QUETIAPINE [Concomitant]

REACTIONS (2)
  - White blood cell count decreased [None]
  - Neutrophil count decreased [None]
